FAERS Safety Report 21570004 (Version 1)
Quarter: 2022Q4

REPORT INFORMATION
  Report Type: Spontaneous
  Country: US (occurrence: None)
  Receive Date: 20221109
  Receipt Date: 20221109
  Transmission Date: 20230113
  Serious: Yes (Other)
  Sender: FDA-Public Use
  Company Number: US-ROCHE-3213275

PATIENT

DRUGS (1)
  1. GAZYVA [Suspect]
     Active Substance: OBINUTUZUMAB
     Indication: Follicular lymphoma
     Dosage: INFUSION ;ONGOING: NO
     Route: 042
     Dates: start: 20221103

REACTIONS (5)
  - Nausea [Unknown]
  - Vomiting [Unknown]
  - Back pain [Unknown]
  - Oxygen saturation abnormal [Unknown]
  - Chills [Unknown]

NARRATIVE: CASE EVENT DATE: 20221103
